FAERS Safety Report 9929644 (Version 1)
Quarter: 2014Q1

REPORT INFORMATION
  Report Type: Spontaneous
  Country: US (occurrence: US)
  Receive Date: 20140227
  Receipt Date: 20140227
  Transmission Date: 20141002
  Serious: Yes (Death, Hospitalization)
  Sender: FDA-Public Use
  Company Number: US-BRACCO-010613

PATIENT
  Sex: Male

DRUGS (1)
  1. ISOVUE-M [Suspect]
     Indication: SPINAL MYELOGRAM
     Route: 037
     Dates: start: 20110513, end: 20110513

REACTIONS (2)
  - Convulsion [Fatal]
  - Depressed level of consciousness [Unknown]
